FAERS Safety Report 25961150 (Version 1)
Quarter: 2025Q4

REPORT INFORMATION
  Report Type: Spontaneous
  Country: US (occurrence: US)
  Receive Date: 20251027
  Receipt Date: 20251027
  Transmission Date: 20260117
  Serious: Yes (Other)
  Sender: AUROBINDO
  Company Number: US-MLMSERVICE-20251008-PI667702-00117-1

PATIENT
  Age: 64 Year
  Sex: Female

DRUGS (3)
  1. DEXAMETHASONE [Suspect]
     Active Substance: DEXAMETHASONE
     Indication: Autoimmune haemolytic anaemia
     Dosage: UNK
     Route: 065
  2. CYTARABINE [Suspect]
     Active Substance: CYTARABINE
     Indication: Acute myeloid leukaemia
     Dosage: UNK
     Route: 065
  3. POSACONAZOLE [Concomitant]
     Active Substance: POSACONAZOLE
     Indication: Prophylaxis
     Dosage: UNK
     Route: 065

REACTIONS (9)
  - Escherichia bacteraemia [Recovered/Resolved]
  - Soft tissue infection [Recovered/Resolved]
  - Skin mass [Recovered/Resolved]
  - Joint effusion [Recovered/Resolved]
  - Synovitis [Recovered/Resolved]
  - Abscess limb [Recovered/Resolved]
  - Lung opacity [Recovered/Resolved]
  - Pulmonary cavitation [Recovered/Resolved]
  - Myositis [Recovered/Resolved]
